FAERS Safety Report 18806771 (Version 1)
Quarter: 2021Q1

REPORT INFORMATION
  Report Type: Spontaneous
  Country: US (occurrence: US)
  Receive Date: 20210128
  Receipt Date: 20210128
  Transmission Date: 20210419
  Serious: Yes (Death)
  Sender: FDA-Public Use
  Company Number: None

PATIENT
  Age: 77 Year
  Sex: Male
  Weight: 109.35 kg

DRUGS (16)
  1. HEARING AIDS [Concomitant]
  2. PACEMAKER [Concomitant]
     Active Substance: DEVICE
  3. AMLODIPINE [Concomitant]
     Active Substance: AMLODIPINE BESYLATE
  4. VALSARTAN. [Concomitant]
     Active Substance: VALSARTAN
  5. CARVEDILOL. [Concomitant]
     Active Substance: CARVEDILOL
  6. CENTRUM SILVER [Concomitant]
     Active Substance: MINERALS\VITAMINS
  7. HYDROCHLOROTHIAZIDE. [Concomitant]
     Active Substance: HYDROCHLOROTHIAZIDE
  8. RESTASIS [Concomitant]
     Active Substance: CYCLOSPORINE
  9. TRELEGY ELLIPTA [Suspect]
     Active Substance: FLUTICASONE FUROATE\UMECLIDINIUM BROMIDE\VILANTEROL TRIFENATATE
     Indication: PRODUCT USED FOR UNKNOWN INDICATION
     Dosage: ?          QUANTITY:1 INHALATION(S);?
     Route: 055
  10. ST JOHN^S WART 900MG [Concomitant]
  11. BABY ASPIRIN [Concomitant]
     Active Substance: ASPIRIN
  12. LEVOTHYROXINE. [Concomitant]
     Active Substance: LEVOTHYROXINE
  13. TIMOLOL GEL FORMING SOLUTION [Concomitant]
     Active Substance: TIMOLOL
  14. COENZYME Q10 [Concomitant]
     Active Substance: DIETARY SUPPLEMENT\UBIDECARENONE
  15. TRELEGY ELLIPTA INHALER [Concomitant]
  16. SLEEP APNEA DEVICE [Concomitant]

REACTIONS (6)
  - Cerebrovascular accident [None]
  - Seizure [None]
  - Myocardial infarction [None]
  - Asthenia [None]
  - Drug interaction [None]
  - Sudden death [None]

NARRATIVE: CASE EVENT DATE: 20191020
